FAERS Safety Report 14221089 (Version 1)
Quarter: 2017Q4

REPORT INFORMATION
  Report Type: Spontaneous
  Country: US (occurrence: US)
  Receive Date: 20171124
  Receipt Date: 20171124
  Transmission Date: 20180321
  Serious: No
  Sender: FDA-Public Use
  Company Number: US-FRESENIUS MEDICAL CARE RENAL THERAPIES GROUP-FMC-1711-001360

PATIENT
  Sex: Male
  Weight: 116 kg

DRUGS (7)
  1. TORASEMIDE [Concomitant]
     Active Substance: TORSEMIDE
  2. DELFLEX WITH DEXTROSE 2.5% LOW MAGNESIUM LOW CALCIUM [Suspect]
     Active Substance: CALCIUM CHLORIDE\DEXTROSE\MAGNESIUM CHLORIDE\SODIUM CHLORIDE\SODIUM LACTATE
     Indication: END STAGE RENAL DISEASE
     Route: 033
     Dates: start: 20170109
  3. LOSARTAN. [Concomitant]
     Active Substance: LOSARTAN
  4. LYRICA [Concomitant]
     Active Substance: PREGABALIN
  5. NOVOLOG [Concomitant]
     Active Substance: INSULIN ASPART
  6. METOPROLOL. [Concomitant]
     Active Substance: METOPROLOL
  7. LEVEMIR [Concomitant]
     Active Substance: INSULIN DETEMIR

REACTIONS (1)
  - Abdominal distension [Recovered/Resolved]
